FAERS Safety Report 5593333-7 (Version None)
Quarter: 2008Q1

REPORT INFORMATION
  Report Type: 
  Country: None (occurrence: None)
  Receive Date: 20080116
  Receipt Date: 20080109
  Transmission Date: 20080703
  Serious: Yes (Other)
  Sender: FDA-Public Use
  Company Number: GB-ASTRAZENECA-2008GB00076

PATIENT
  Age: 50 Year
  Sex: Female

DRUGS (15)
  1. LIDOCAINE [Suspect]
     Indication: ANAESTHESIA
     Route: 047
     Dates: start: 20070530, end: 20070530
  2. LIDOCAINE [Suspect]
     Indication: CATARACT OPERATION
     Route: 047
     Dates: start: 20070530, end: 20070530
  3. ADRENALINE [Suspect]
     Indication: EYE IRRIGATION
     Route: 047
     Dates: start: 20070530, end: 20070530
  4. BETAMETHASONE [Suspect]
     Indication: POSTOPERATIVE CARE
     Route: 047
     Dates: start: 20070530, end: 20070530
  5. CYCLOPENTOLATE HCL [Suspect]
     Indication: PREOPERATIVE CARE
     Route: 031
     Dates: start: 20070530, end: 20070530
  6. CYCLOPENTOLATE HCL [Suspect]
     Dosage: DOSE INCREASED
     Route: 065
  7. HYALURONATE SODIUM [Suspect]
     Indication: PERIOPERATIVE ANALGESIA
     Route: 047
     Dates: start: 20070530, end: 20070530
  8. NEOMYCIN [Suspect]
     Indication: POSTOPERATIVE CARE
     Route: 047
     Dates: start: 20070530, end: 20070530
  9. OCUFEN [Suspect]
     Indication: PREOPERATIVE CARE
     Route: 047
     Dates: start: 20070530, end: 20070530
  10. PHENYLEPHRINE [Suspect]
     Indication: CATARACT OPERATION
     Route: 047
     Dates: start: 20070530, end: 20070530
  11. POVIDONE IODINE [Suspect]
     Indication: CATARACT OPERATION
     Route: 047
     Dates: start: 20070530, end: 20070530
  12. PROXYMETACAINE [Suspect]
     Indication: PERIOPERATIVE ANALGESIA
     Route: 065
     Dates: start: 20070530, end: 20070530
  13. VANCOMYCIN [Suspect]
     Indication: EYE IRRIGATION
     Route: 047
     Dates: start: 20070530, end: 20070530
  14. VANCOMYCIN [Suspect]
     Dosage: DOSE INCREASED
     Route: 065
  15. BALANCED SALT SOLUTION [Suspect]
     Indication: PREOPERATIVE CARE
     Route: 065
     Dates: start: 20070530, end: 20070530

REACTIONS (1)
  - TOXIC ANTERIOR SEGMENT SYNDROME [None]
